FAERS Safety Report 6387282-4 (Version None)
Quarter: 2009Q3

REPORT INFORMATION
  Report Type: 
  Country: None (occurrence: None)
  Receive Date: 20090928
  Receipt Date: 20090914
  Transmission Date: 20100115
  Serious: Yes (Other)
  Sender: FDA-Public Use
  Company Number: WAES 0909USA01617

PATIENT
  Age: 65 Year
  Sex: Female

DRUGS (3)
  1. ZOCOR [Suspect]
     Dosage: PO
     Route: 048
     Dates: end: 20090801
  2. BETASERON [Suspect]
     Indication: MULTIPLE SCLEROSIS
     Dosage: SC; 4 IU/3XW/SC
     Route: 058
     Dates: start: 19950101, end: 19950401
  3. BETASERON [Suspect]
     Indication: MULTIPLE SCLEROSIS
     Dosage: SC; 4 IU/3XW/SC
     Route: 058
     Dates: start: 20090521, end: 20090813

REACTIONS (3)
  - ARTHRITIS [None]
  - FOOT FRACTURE [None]
  - PAIN [None]
